FAERS Safety Report 21577018 (Version 1)
Quarter: 2022Q4

REPORT INFORMATION
  Report Type: Spontaneous
  Country: US (occurrence: US)
  Receive Date: 20221110
  Receipt Date: 20221110
  Transmission Date: 20230112
  Serious: Yes (Other)
  Sender: FDA-Public Use
  Company Number: US-BRISTOL-MYERS SQUIBB COMPANY-2022-135658

PATIENT
  Age: 51 Year
  Sex: Female
  Weight: 129.27 kg

DRUGS (2)
  1. ORENCIA [Suspect]
     Active Substance: ABATACEPT
     Indication: Rheumatoid arthritis
     Route: 058
  2. PLAQUENIL [Suspect]
     Active Substance: HYDROXYCHLOROQUINE SULFATE
     Indication: Product used for unknown indication
     Route: 065

REACTIONS (8)
  - Eye haemorrhage [Unknown]
  - Blindness unilateral [Unknown]
  - Optic nerve disorder [Unknown]
  - Vision blurred [Unknown]
  - Skin exfoliation [Unknown]
  - Pruritus [Unknown]
  - Neovascular age-related macular degeneration [Unknown]
  - Dry age-related macular degeneration [Unknown]
